FAERS Safety Report 5606571-1 (Version None)
Quarter: 2008Q1

REPORT INFORMATION
  Report Type: 
  Country: None (occurrence: None)
  Receive Date: 20080129
  Receipt Date: 20080124
  Transmission Date: 20080703
  Serious: Yes (Life-Threatening, Hospitalization)
  Sender: FDA-Public Use
  Company Number: US-GILEAD-2008-0014846

PATIENT
  Sex: Female
  Weight: 86.26 kg

DRUGS (12)
  1. LETAIRIS [Suspect]
     Indication: PULMONARY HYPERTENSION
     Route: 048
  2. COUMADIN [Suspect]
     Route: 048
  3. PROTONIX [Concomitant]
     Route: 048
  4. LANOXIN [Concomitant]
     Route: 048
  5. LASIX [Concomitant]
     Route: 048
  6. PRINIVIL [Concomitant]
     Route: 048
  7. TOPROL-XL [Concomitant]
     Route: 048
  8. KLOR-CON [Concomitant]
     Route: 048
  9. LIPITOR [Concomitant]
     Route: 048
  10. LEVOXYL [Concomitant]
     Route: 048
  11. ENABLEX [Concomitant]
     Route: 048
  12. LEXAPRO [Concomitant]
     Route: 048

REACTIONS (3)
  - ANAEMIA [None]
  - CHRONIC GASTROINTESTINAL BLEEDING [None]
  - GASTROINTESTINAL TELANGIECTASIA [None]
